FAERS Safety Report 5036765-8 (Version None)
Quarter: 2006Q2

REPORT INFORMATION
  Report Type: 
  Country: None (occurrence: None)
  Receive Date: 20060622
  Receipt Date: 20060601
  Transmission Date: 20061013
  Serious: Yes (Hospitalization, Other)
  Sender: FDA-Public Use
  Company Number: 225277

PATIENT
  Age: 66 Year
  Sex: Male

DRUGS (10)
  1. AVASTIN [Suspect]
     Indication: COLORECTAL CANCER METASTATIC
     Dosage: 400 MG; 385 MG
     Dates: start: 20051004
  2. AVASTIN [Suspect]
     Indication: COLORECTAL CANCER METASTATIC
     Dosage: 400 MG; 385 MG
     Dates: start: 20060410
  3. FLUOROURACIL [Concomitant]
  4. OXALIPLATIN (OXALIPLATIN_ [Concomitant]
  5. LEUCOVORIN (LEUCOVORIN) [Concomitant]
  6. SENNOKOT (SENNA) [Concomitant]
  7. NEXIUM [Concomitant]
  8. LISINOPRIL [Concomitant]
  9. METOPROLOL TARTRATE [Concomitant]
  10. PERCOCET [Concomitant]

REACTIONS (6)
  - CONVULSION [None]
  - FALL [None]
  - HYPERTENSIVE CRISIS [None]
  - REVERSIBLE POSTERIOR LEUKOENCEPHALOPATHY SYNDROME [None]
  - SYNCOPE [None]
  - VOMITING [None]
